FAERS Safety Report 19932988 (Version 2)
Quarter: 2021Q4

REPORT INFORMATION
  Report Type: Other
  Country: FR (occurrence: FR)
  Receive Date: 20211008
  Receipt Date: 20211013
  Transmission Date: 20220303
  Serious: Yes (Hospitalization, Other)
  Sender: FDA-Public Use
  Company Number: None

PATIENT
  Age: 52 Year
  Sex: Female

DRUGS (3)
  1. TACROLIMUS [Interacting]
     Active Substance: TACROLIMUS
     Indication: Prophylaxis against transplant rejection
     Dosage: UNK UNK, UNKNOWN FREQ (ADAPTED BASED ON THERAPEUTIC DRUG MONITORING).
     Route: 048
     Dates: start: 2014
  2. CERTICAN [Interacting]
     Active Substance: EVEROLIMUS
     Indication: Prophylaxis against transplant rejection
     Dosage: UNK UNK, UNKNOWN FREQ. (ADAPTED BASED ON THERAPEUTIC DRUG MONITORING)
     Route: 048
     Dates: start: 2014
  3. NOXAFIL [Interacting]
     Active Substance: POSACONAZOLE
     Indication: Bronchopulmonary aspergillosis
     Route: 048
     Dates: start: 20210902, end: 20210912

REACTIONS (3)
  - Immunosuppressant drug level increased [Unknown]
  - Thrombocytopenia [Unknown]
  - Drug interaction [Unknown]

NARRATIVE: CASE EVENT DATE: 20210906
